FAERS Safety Report 5171101-8 (Version None)
Quarter: 2006Q4

REPORT INFORMATION
  Report Type: 
  Country: None (occurrence: None)
  Receive Date: 20061213
  Receipt Date: 20061206
  Transmission Date: 20070319
  Serious: Yes (Other)
  Sender: FDA-Public Use
  Company Number: GB-GLAXOSMITHKLINE-B0450166A

PATIENT
  Age: 31 Year
  Sex: Female
  Weight: 68.9 kg

DRUGS (3)
  1. ACYCLOVIR [Suspect]
     Dosage: 800MG FIVE TIMES PER DAY
     Route: 048
     Dates: start: 20061016, end: 20061017
  2. KAPAKE [Concomitant]
     Indication: MUSCULOSKELETAL PAIN
     Route: 048
     Dates: start: 20040102
  3. ORLISTAT [Concomitant]
     Dosage: 120MG THREE TIMES PER DAY
     Route: 048

REACTIONS (2)
  - DIARRHOEA [None]
  - DIARRHOEA HAEMORRHAGIC [None]
